FAERS Safety Report 10869857 (Version 6)
Quarter: 2015Q4

REPORT INFORMATION
  Report Type: Spontaneous
  Country: JP (occurrence: JP)
  Receive Date: 20150226
  Receipt Date: 20151230
  Transmission Date: 20160304
  Serious: Yes (Death, Other)
  Sender: FDA-Public Use
  Company Number: JP-009507513-1502JPN009107

PATIENT
  Age: 69 Year
  Sex: Male

DRUGS (11)
  1. CANCIDAS [Suspect]
     Active Substance: CASPOFUNGIN ACETATE
     Indication: SYSTEMIC CANDIDA
     Dosage: 50 MG, ONE A DAY
     Route: 041
     Dates: start: 20150204, end: 20150205
  2. SODIUM CHLORIDE. [Concomitant]
     Active Substance: SODIUM CHLORIDE
     Indication: DEHYDRATION
     Dosage: 20 ML, QD
     Route: 051
     Dates: start: 20150202
  3. RAPIACTA [Concomitant]
     Active Substance: PERAMIVIR
     Indication: INFLUENZA
     Dosage: 300 MG, ONCE
     Route: 051
     Dates: start: 20150204, end: 20150204
  4. SOL MELCORT [Concomitant]
     Active Substance: METHYLPREDNISOLONE
     Indication: ACUTE RESPIRATORY FAILURE
     Dosage: 40 MG, QD
     Route: 051
     Dates: start: 20150204, end: 20150205
  5. OXYGEN. [Concomitant]
     Active Substance: OXYGEN
     Indication: PNEUMONIA
     Dosage: UNK
     Route: 055
     Dates: start: 20150203, end: 20150209
  6. ZITHROMAC [Concomitant]
     Active Substance: AZITHROMYCIN DIHYDRATE
     Indication: PNEUMONIA
     Dosage: 500 MG, QD
     Route: 051
     Dates: start: 20150202, end: 20150204
  7. SOLITA T-1 [Concomitant]
     Indication: DEHYDRATION
     Dosage: 200 ML, ONCE
     Route: 051
     Dates: start: 20150203, end: 20150203
  8. PREDOPA [Concomitant]
     Active Substance: DOPAMINE\DOPAMINE HYDROCHLORIDE
     Indication: BLOOD PRESSURE DECREASED
     Dosage: 10 DF, AS OCASION ARISES, INTERVAL: 1 HOUR
     Route: 051
     Dates: start: 20150204
  9. ALBUMIN HUMAN [Concomitant]
     Active Substance: ALBUMIN (HUMAN)
     Indication: HYPOALBUMINAEMIA
     Dosage: 12.5 G, QD
     Route: 051
     Dates: start: 20150204
  10. CANCIDAS [Suspect]
     Active Substance: CASPOFUNGIN ACETATE
     Indication: SYSTEMIC CANDIDA
     Dosage: 70 MG, ONCE
     Route: 041
     Dates: start: 20150203, end: 20150203
  11. ZOSYN [Concomitant]
     Active Substance: PIPERACILLIN SODIUM\TAZOBACTAM SODIUM
     Indication: PNEUMONIA
     Dosage: 4.5 G, TID
     Route: 041
     Dates: start: 20150202, end: 20150204

REACTIONS (2)
  - Renal impairment [Fatal]
  - Multi-organ failure [Fatal]

NARRATIVE: CASE EVENT DATE: 201502
